FAERS Safety Report 24386687 (Version 1)
Quarter: 2024Q4

REPORT INFORMATION
  Report Type: Report from Study
  Country: US (occurrence: US)
  Receive Date: 20241002
  Receipt Date: 20241002
  Transmission Date: 20250115
  Serious: Yes (Hospitalization, Other)
  Sender: ABBVIE
  Company Number: US-ABBVIE-5913719

PATIENT
  Sex: Female
  Weight: 41.73 kg

DRUGS (4)
  1. HUMIRA [Suspect]
     Active Substance: ADALIMUMAB
     Indication: Rheumatoid arthritis
     Route: 058
     Dates: start: 20240717
  2. LACTOBACILLUS ACIDOPHILUS [Concomitant]
     Active Substance: LACTOBACILLUS ACIDOPHILUS
     Indication: Product used for unknown indication
  3. CORTISONE [Suspect]
     Active Substance: CORTISONE
     Indication: Product used for unknown indication
     Route: 065
  4. LEFLUNOMIDE [Concomitant]
     Active Substance: LEFLUNOMIDE
     Indication: Product used for unknown indication
     Dosage: 20 MILLIGRAM
     Route: 065

REACTIONS (26)
  - Injection site infection [Recovering/Resolving]
  - Blood potassium decreased [Unknown]
  - Arthritis infective [Unknown]
  - Scar [Recovering/Resolving]
  - Cyst [Unknown]
  - Pain in extremity [Recovering/Resolving]
  - Erythema [Recovered/Resolved]
  - Musculoskeletal disorder [Recovering/Resolving]
  - Cyst [Recovering/Resolving]
  - Dizziness [Recovering/Resolving]
  - Feeling abnormal [Recovering/Resolving]
  - Headache [Recovering/Resolving]
  - Joint swelling [Recovering/Resolving]
  - Pyrexia [Recovered/Resolved]
  - Feeding disorder [Recovering/Resolving]
  - Sitting disability [Recovering/Resolving]
  - Loss of consciousness [Recovered/Resolved]
  - Weight decreased [Not Recovered/Not Resolved]
  - Nasal pruritus [Recovered/Resolved]
  - Nausea [Recovering/Resolving]
  - Arthralgia [Recovering/Resolving]
  - Nasopharyngitis [Recovered/Resolved]
  - Peripheral swelling [Recovering/Resolving]
  - Pain [Recovered/Resolved]
  - Cyst removal [Unknown]
  - Wound [Unknown]

NARRATIVE: CASE EVENT DATE: 20240101
